FAERS Safety Report 4785201-5 (Version None)
Quarter: 2005Q3

REPORT INFORMATION
  Report Type: 
  Country: None (occurrence: None)
  Receive Date: 20050930
  Receipt Date: 20050923
  Transmission Date: 20060218
  Serious: Yes (Life-Threatening, Hospitalization, Other)
  Sender: FDA-Public Use
  Company Number: US-MERCK-0509USA03458

PATIENT
  Age: 65 Year
  Sex: Female

DRUGS (11)
  1. DECADRON [Suspect]
     Indication: MULTIPLE MYELOMA
     Route: 048
     Dates: start: 20031001
  2. DECADRON [Suspect]
     Route: 048
     Dates: start: 20040101
  3. DECADRON [Suspect]
     Route: 048
     Dates: start: 20041201
  4. DECADRON [Suspect]
     Route: 048
     Dates: start: 20050401, end: 20050601
  5. THALOMID [Suspect]
     Indication: MULTIPLE MYELOMA
     Route: 048
     Dates: start: 20031001
  6. THALOMID [Suspect]
     Route: 048
     Dates: start: 20040101
  7. THALOMID [Suspect]
     Route: 048
     Dates: start: 20050401, end: 20050601
  8. VELCADE [Suspect]
     Indication: MULTIPLE MYELOMA
     Route: 065
     Dates: start: 20040101, end: 20040101
  9. CYCLOPHOSPHAMIDE [Suspect]
     Indication: MULTIPLE MYELOMA
     Route: 065
     Dates: start: 20041201, end: 20050301
  10. DOXORUBICIN [Suspect]
     Indication: MULTIPLE MYELOMA
     Route: 065
     Dates: start: 20041201, end: 20050301
  11. VINCRISTINE SULFATE [Suspect]
     Indication: MULTIPLE MYELOMA
     Route: 065
     Dates: start: 20041201, end: 20050301

REACTIONS (5)
  - DRUG INEFFECTIVE [None]
  - INTESTINAL PERFORATION [None]
  - MULTIPLE MYELOMA [None]
  - NEUROPATHY [None]
  - PANCYTOPENIA [None]
